FAERS Safety Report 6235335-3 (Version None)
Quarter: 2009Q2

REPORT INFORMATION
  Report Type: 
  Country: None (occurrence: None)
  Receive Date: 20090618
  Receipt Date: 20090615
  Transmission Date: 20091009
  Serious: Yes (Hospitalization, Other)
  Sender: FDA-Public Use
  Company Number: BR-ABBOTT-09P-020-0572417-00

PATIENT
  Sex: Male
  Weight: 105 kg

DRUGS (5)
  1. HUMIRA [Suspect]
     Indication: RHEUMATOID ARTHRITIS
     Route: 058
     Dates: start: 20071101, end: 20090301
  2. AMARYL [Concomitant]
     Indication: DIABETES MELLITUS
  3. AVANDIA [Concomitant]
     Indication: DIABETES MELLITUS
  4. METFORMIN HCL [Concomitant]
     Indication: DIABETES MELLITUS
  5. ENALAPRIL [Concomitant]
     Indication: HYPERTENSION

REACTIONS (3)
  - INCISION SITE INFECTION [None]
  - VARICOSE VEIN [None]
  - VARICOSE VEIN OPERATION [None]
